FAERS Safety Report 6153848-X (Version None)
Quarter: 2009Q2

REPORT INFORMATION
  Report Type: 
  Country: None (occurrence: None)
  Receive Date: 20090414
  Receipt Date: 20090408
  Transmission Date: 20091009
  Serious: Yes (Hospitalization, Other)
  Sender: FDA-Public Use
  Company Number: US-BAYER-200836400NA

PATIENT
  Age: 38 Year
  Sex: Female
  Weight: 68 kg

DRUGS (5)
  1. BETASERON [Suspect]
     Indication: RELAPSING-REMITTING MULTIPLE SCLEROSIS
     Dosage: AS USED: 8 MIU
     Route: 058
     Dates: end: 20030101
  2. VERAPAMIL [Concomitant]
     Dosage: TOTAL DAILY DOSE: 480 MG  UNIT DOSE: 240 MG
     Route: 048
  3. HYDROCODONE BITARTRATE [Concomitant]
     Route: 048
  4. MAXZIDE [Concomitant]
     Route: 048
  5. FOLBIC [Concomitant]
     Dosage: TOTAL DAILY DOSE: 1 DF
     Route: 048

REACTIONS (4)
  - CONTUSION [None]
  - DEPRESSION [None]
  - PAIN [None]
  - SUICIDE ATTEMPT [None]
